FAERS Safety Report 5339415-6 (Version None)
Quarter: 2007Q2

REPORT INFORMATION
  Report Type: 
  Country: None (occurrence: None)
  Receive Date: 20070525
  Receipt Date: 20070517
  Transmission Date: 20071010
  Serious: Yes (Hospitalization)
  Sender: FDA-Public Use
  Company Number: E2090-00242-CLI-JP

PATIENT
  Age: 70 Year
  Sex: Male

DRUGS (1)
  1. ZONISAMIDE [Suspect]
     Indication: PARKINSON'S DISEASE
     Dosage: DOUBLE BLIND, 1 IN 1 D, ORAL
     Route: 048
     Dates: start: 20070508

REACTIONS (4)
  - NASOPHARYNGITIS [None]
  - PYREXIA [None]
  - RASH [None]
  - SPUTUM DISCOLOURED [None]
